FAERS Safety Report 16444411 (Version 2)
Quarter: 2019Q3

REPORT INFORMATION
  Report Type: Spontaneous
  Country: DE (occurrence: DE)
  Receive Date: 20190618
  Receipt Date: 20190708
  Transmission Date: 20191004
  Serious: Yes (Other)
  Sender: FDA-Public Use
  Company Number: DE-AUROBINDO-AUR-APL-2019-033771

PATIENT

DRUGS (2)
  1. ZOPICLON [Concomitant]
     Active Substance: ZOPICLONE
     Indication: SLEEP DISORDER
     Dosage: UNK, ONE TABLET BEFORE GOING TO BED
     Route: 048
     Dates: start: 20190503
  2. LEVETIRACETAM AUROBINDO 1000MG FILM-COATED TABLETS [Suspect]
     Active Substance: LEVETIRACETAM
     Indication: EPILEPSY
     Dosage: UNK, 1 1/2 TABLETS IN THE MORNING, IN THE EVENING
     Route: 048
     Dates: start: 201606

REACTIONS (3)
  - Epilepsy [Recovered/Resolved]
  - Drug ineffective [Unknown]
  - Weight increased [Not Recovered/Not Resolved]

NARRATIVE: CASE EVENT DATE: 2016
